FAERS Safety Report 5842034-6 (Version None)
Quarter: 2008Q3

REPORT INFORMATION
  Report Type: 
  Country: None (occurrence: None)
  Receive Date: 20080811
  Receipt Date: 20080811
  Transmission Date: 20090109
  Serious: Yes (Hospitalization)
  Sender: FDA-Public Use
  Company Number: None

PATIENT
  Age: 34 Year
  Sex: Male
  Weight: 83.9154 kg

DRUGS (2)
  1. AVELOX [Suspect]
     Indication: SINUSITIS
     Dosage: 400MG PER DAY  1X DAILY PO
     Route: 048
     Dates: start: 20080514, end: 20080528
  2. PREDINSONE  10MG TB DSPK PER PERRIGO [Suspect]
     Indication: SINUSITIS
     Dosage: TAKE AS DIRECTED  2X DAILY PO
     Route: 048
     Dates: start: 20080514, end: 20080528

REACTIONS (1)
  - TENDON RUPTURE [None]
